FAERS Safety Report 5838179-7 (Version None)
Quarter: 2008Q3

REPORT INFORMATION
  Report Type: 
  Country: None (occurrence: None)
  Receive Date: 20080808
  Receipt Date: 20080731
  Transmission Date: 20090109
  Serious: Yes (Hospitalization, Other)
  Sender: FDA-Public Use
  Company Number: GB-NOVOPROD-273610

PATIENT
  Sex: Female
  Weight: 3.58 kg

DRUGS (5)
  1. INSULIN DETEMIR PENFILL [Suspect]
     Indication: TYPE 1 DIABETES MELLITUS
     Route: 064
     Dates: start: 20070531
  2. INSULIN DETEMIR PENFILL [Suspect]
     Dosage: UNK, UNK
     Dates: start: 20080329
  3. NOVORAPID PENFILL 3.0 ML [Suspect]
     Indication: TYPE 1 DIABETES MELLITUS
     Dosage: UNK, UNK
     Route: 064
     Dates: start: 20070531
  4. LEVOTHYROXINE SODIUM [Concomitant]
     Dosage: UNK, UNK
     Route: 064
  5. CYCLIZINE [Concomitant]
     Dosage: UNK, UNK
     Route: 064

REACTIONS (1)
  - SKIN INFECTION [None]
